FAERS Safety Report 6369592-X (Version None)
Quarter: 2009Q3

REPORT INFORMATION
  Report Type: 
  Country: None (occurrence: None)
  Receive Date: 20090923
  Receipt Date: 20090914
  Transmission Date: 20100115
  Serious: Yes (Other)
  Sender: FDA-Public Use
  Company Number: PHHY2009BR19856

PATIENT
  Age: 44 Year
  Sex: Male
  Weight: 84 kg

DRUGS (7)
  1. TEGRETOL [Suspect]
     Indication: PANIC DISORDER
     Dosage: 2 TABLETS EVERY 8 HOURS
     Route: 048
     Dates: start: 19940101
  2. TEGRETOL [Suspect]
     Indication: MEMORY IMPAIRMENT
  3. TEGRETOL [Suspect]
     Indication: NERVOUSNESS
  4. TEGRETOL [Suspect]
     Indication: DEPRESSION
  5. DIAZEPAM [Concomitant]
     Indication: PANIC DISORDER
     Dosage: 1 DF, DAILY
     Route: 048
  6. FLUOXETINE [Suspect]
     Dosage: 4 DF, DAILY
     Dates: end: 20090401
  7. AMITRIL [Suspect]
     Dosage: 1 DF, DAILY
     Dates: end: 20090401

REACTIONS (13)
  - ACTIVITIES OF DAILY LIVING IMPAIRED [None]
  - CHEST DISCOMFORT [None]
  - CHEST PAIN [None]
  - FEAR [None]
  - FEELING ABNORMAL [None]
  - HYPERTENSION [None]
  - MUSCULAR WEAKNESS [None]
  - NERVOUSNESS [None]
  - NEUROPATHY PERIPHERAL [None]
  - PANIC DISORDER [None]
  - TREATMENT NONCOMPLIANCE [None]
  - TREMOR [None]
  - WEIGHT INCREASED [None]
